FAERS Safety Report 7065824-3 (Version None)
Quarter: 2010Q4

REPORT INFORMATION
  Report Type: 
  Country: None (occurrence: None)
  Receive Date: 20101027
  Receipt Date: 20101015
  Transmission Date: 20110411
  Serious: Yes (Hospitalization)
  Sender: FDA-Public Use
  Company Number: IT-ELI_LILLY_AND_COMPANY-IT201010003698

PATIENT
  Sex: Female

DRUGS (7)
  1. ALIMTA [Suspect]
     Indication: MESOTHELIOMA MALIGNANT
     Dosage: 891.7 MG, PER CYCLE
     Route: 042
     Dates: start: 20100804, end: 20100915
  2. GLUTATHIONE SODIUM [Concomitant]
     Indication: CHEMOTHERAPY NEUROTOXICITY ATTENUATION
     Dosage: 1872 MG, UNKNOWN
     Route: 042
     Dates: start: 20100804, end: 20100916
  3. CISPLATIN [Concomitant]
     Indication: MESOTHELIOMA MALIGNANT
     Dosage: 53.49 MG, UNKNOWN
     Route: 042
     Dates: start: 20100804, end: 20100916
  4. DEXAMETHASONE [Concomitant]
     Indication: PROPHYLAXIS OF NAUSEA AND VOMITING
     Dosage: 20 MG, UNKNOWN
     Route: 042
     Dates: start: 20100804, end: 20100916
  5. ONDANSETRON HYDROCHLORIDE [Concomitant]
     Indication: PROPHYLAXIS OF NAUSEA AND VOMITING
     Dosage: 8 MG, UNKNOWN
     Route: 042
     Dates: start: 20100804, end: 20100916
  6. AMIODARONE [Concomitant]
     Indication: ATRIAL FIBRILLATION
     Dosage: 200 MG, UNKNOWN
     Route: 048
     Dates: start: 20100715, end: 20101008
  7. GRANULOKINE [Concomitant]
     Indication: NEUTROPENIA
     Dosage: 30 IU IN MILLIONS, UNKNOWN
     Route: 058
     Dates: start: 20100919, end: 20100923

REACTIONS (1)
  - INTESTINAL PERFORATION [None]
